FAERS Safety Report 10883489 (Version 1)
Quarter: 2015Q1

REPORT INFORMATION
  Report Type: Spontaneous
  Country: US (occurrence: None)
  Receive Date: 20150226
  Receipt Date: 20150226
  Transmission Date: 20150721
  Serious: Yes (Other)
  Sender: FDA-Public Use
  Company Number: None

PATIENT
  Age: 32 Year
  Sex: Female
  Weight: 79.83 kg

DRUGS (1)
  1. PARAGARD T 380A [Suspect]
     Active Substance: COPPER
     Dates: start: 20140422, end: 20150102

REACTIONS (15)
  - Anxiety [None]
  - Muscle spasms [None]
  - Abdominal pain upper [None]
  - Hypomenorrhoea [None]
  - Menstruation irregular [None]
  - Breast pain [None]
  - Nausea [None]
  - Insomnia [None]
  - Liver tenderness [None]
  - Depression [None]
  - Back pain [None]
  - Gallbladder disorder [None]
  - Breast tenderness [None]
  - Anaemia [None]
  - Musculoskeletal chest pain [None]

NARRATIVE: CASE EVENT DATE: 20150225
